FAERS Safety Report 5303237-2 (Version None)
Quarter: 2007Q2

REPORT INFORMATION
  Report Type: 
  Country: None (occurrence: None)
  Receive Date: 20070420
  Receipt Date: 20070411
  Transmission Date: 20071010
  Serious: Yes (Hospitalization, Other)
  Sender: FDA-Public Use
  Company Number: JP-ELI_LILLY_AND_COMPANY-JP200703005812

PATIENT
  Age: 72 Year
  Sex: Male
  Weight: 56 kg

DRUGS (5)
  1. GEMZAR [Suspect]
     Indication: PANCREATIC CARCINOMA STAGE IV
     Dosage: 1500 MG, OTHER
     Route: 042
     Dates: start: 20060222, end: 20070213
  2. GEMZAR [Suspect]
     Dosage: 1500 MG, OTHER
     Route: 042
     Dates: start: 20070320, end: 20070320
  3. GEMZAR [Suspect]
     Dosage: 1500 MG, OTHER
     Route: 042
     Dates: start: 20070320, end: 20070320
  4. GEMZAR [Suspect]
     Dosage: 1500 MG, OTHER
     Route: 042
     Dates: start: 20070320, end: 20070320
  5. WARFARIN POTASSIUM [Concomitant]
     Indication: PROPHYLAXIS
     Dosage: 3 MG, DAILY (1/D)
     Route: 048
     Dates: start: 20060123

REACTIONS (7)
  - CARDIAC FAILURE [None]
  - DYSPNOEA [None]
  - HAEMOGLOBIN DECREASED [None]
  - INFECTION [None]
  - OEDEMA [None]
  - PALPITATIONS [None]
  - PLEURAL EFFUSION [None]
